FAERS Safety Report 5913738-1 (Version None)
Quarter: 2008Q4

REPORT INFORMATION
  Report Type: 
  Country: None (occurrence: None)
  Receive Date: 20081007
  Receipt Date: 20081002
  Transmission Date: 20090506
  Serious: Yes (Hospitalization, Other)
  Sender: FDA-Public Use
  Company Number: 100#08#2008-04865

PATIENT
  Age: 61 Year
  Sex: Female

DRUGS (4)
  1. LEUCOVORIN CALCIUM [Suspect]
     Indication: COLORECTAL CANCER
     Dosage: 200 MG/M2 DAYS 1, 8, 15, 22, 29 AND 36
  2. FLUOROURACIL [Suspect]
     Indication: COLORECTAL CANCER
     Dosage: 2000 MG/M2 OVER 24H DAYS 1, 8, 15, 22, 29 AND 36
  3. AVASTIN [Suspect]
     Indication: COLORECTAL CANCER
     Dosage: 5 MG/KG DAYS 1, 15 AND 29
  4. IRINOTECAN HCL [Suspect]
     Indication: COLORECTAL CANCER
     Dosage: 180 MG/M2 DAYS 1, 15 AND 29

REACTIONS (6)
  - ANASTOMOTIC COMPLICATION [None]
  - COLITIS [None]
  - INTESTINAL ISCHAEMIA [None]
  - INTESTINAL PERFORATION [None]
  - PYREXIA [None]
  - WHITE BLOOD CELL COUNT INCREASED [None]
